FAERS Safety Report 23133148 (Version 1)
Quarter: 2023Q4

REPORT INFORMATION
  Report Type: Spontaneous
  Country: FR (occurrence: FR)
  Receive Date: 20231101
  Receipt Date: 20231101
  Transmission Date: 20240109
  Serious: Yes (Other)
  Sender: FDA-Public Use
  Company Number: FR-AMNEAL PHARMACEUTICALS-2023-AMRX-03801

PATIENT
  Age: 35 Year
  Sex: Male

DRUGS (2)
  1. ALBENZA [Suspect]
     Active Substance: ALBENDAZOLE
     Indication: Helminthic infection
     Dosage: 400 MILLIGRAM, QD FOR 3 DAYS
     Route: 065
  2. IVERMECTIN [Suspect]
     Active Substance: IVERMECTIN
     Indication: Helminthic infection
     Dosage: 200 MICROGRAM/KG
     Route: 065

REACTIONS (2)
  - Tropical eosinophilia [Unknown]
  - Myocarditis [Unknown]
